FAERS Safety Report 22285084 (Version 3)
Quarter: 2025Q1

REPORT INFORMATION
  Report Type: Report from Study
  Country: CA (occurrence: CA)
  Receive Date: 20230504
  Receipt Date: 20250130
  Transmission Date: 20250408
  Serious: Yes (Other)
  Sender: PFIZER
  Company Number: CA-PFIZER INC-202300176347

PATIENT
  Age: 13 Year
  Sex: Female
  Weight: 35 kg

DRUGS (24)
  1. METHOTREXATE SODIUM [Suspect]
     Active Substance: METHOTREXATE SODIUM
     Route: 065
  2. METHOTREXATE SODIUM [Suspect]
     Active Substance: METHOTREXATE SODIUM
  3. RENFLEXIS [Suspect]
     Active Substance: INFLIXIMAB-ABDA
     Indication: Crohn^s disease
     Route: 065
  4. RENFLEXIS [Suspect]
     Active Substance: INFLIXIMAB-ABDA
     Route: 042
  5. RENFLEXIS [Suspect]
     Active Substance: INFLIXIMAB-ABDA
     Route: 042
  6. RENFLEXIS [Suspect]
     Active Substance: INFLIXIMAB-ABDA
     Route: 042
  7. RENFLEXIS [Suspect]
     Active Substance: INFLIXIMAB-ABDA
     Route: 042
  8. RENFLEXIS [Suspect]
     Active Substance: INFLIXIMAB-ABDA
     Route: 042
  9. RENFLEXIS [Suspect]
     Active Substance: INFLIXIMAB-ABDA
     Indication: Crohn^s disease
     Route: 065
  10. RENFLEXIS [Suspect]
     Active Substance: INFLIXIMAB-ABDA
     Route: 065
  11. RENFLEXIS [Suspect]
     Active Substance: INFLIXIMAB-ABDA
     Route: 065
  12. RENFLEXIS [Suspect]
     Active Substance: INFLIXIMAB-ABDA
     Route: 065
  13. RENFLEXIS [Suspect]
     Active Substance: INFLIXIMAB-ABDA
     Route: 065
  14. RENFLEXIS [Suspect]
     Active Substance: INFLIXIMAB-ABDA
     Route: 065
  15. RENFLEXIS [Suspect]
     Active Substance: INFLIXIMAB-ABDA
     Route: 065
  16. RENFLEXIS [Suspect]
     Active Substance: INFLIXIMAB-ABDA
     Route: 065
  17. RENFLEXIS [Suspect]
     Active Substance: INFLIXIMAB-ABDA
  18. RENFLEXIS [Suspect]
     Active Substance: INFLIXIMAB-ABDA
  19. RENFLEXIS [Suspect]
     Active Substance: INFLIXIMAB-ABDA
  20. RENFLEXIS [Suspect]
     Active Substance: INFLIXIMAB-ABDA
     Route: 065
  21. RENFLEXIS [Suspect]
     Active Substance: INFLIXIMAB-ABDA
     Route: 065
  22. RENFLEXIS [Suspect]
     Active Substance: INFLIXIMAB-ABDA
  23. RENFLEXIS [Suspect]
     Active Substance: INFLIXIMAB-ABDA
     Indication: Crohn^s disease
     Route: 042
  24. RENFLEXIS [Suspect]
     Active Substance: INFLIXIMAB-ABDA
     Route: 042

REACTIONS (13)
  - Incorrect drug administration rate [Recovered/Resolved]
  - Product use issue [Recovered/Resolved]
  - Acne [Recovered/Resolved]
  - Blood pressure increased [Recovered/Resolved]
  - Body temperature abnormal [Recovered/Resolved]
  - COVID-19 [Recovered/Resolved]
  - Discomfort [Recovered/Resolved]
  - Ear pain [Recovered/Resolved]
  - Haematochezia [Recovered/Resolved]
  - Heart rate irregular [Recovered/Resolved]
  - Oxygen saturation abnormal [Recovered/Resolved]
  - Poor venous access [Recovered/Resolved]
  - Abdominal pain [Recovered/Resolved]
